FAERS Safety Report 7938020-2 (Version None)
Quarter: 2011Q4

REPORT INFORMATION
  Report Type: 
  Country: None (occurrence: None)
  Receive Date: 20111123
  Receipt Date: 20111110
  Transmission Date: 20120403
  Serious: Yes (Hospitalization)
  Sender: FDA-Public Use
  Company Number: US-MYLANLABS-2011S1023623

PATIENT
  Age: 78 Year
  Sex: Female

DRUGS (6)
  1. DIGOXIN [Suspect]
     Dosage: 0.125MG/DAY
     Route: 065
  2. DIGOXIN [Suspect]
     Indication: ATRIAL FIBRILLATION
     Dosage: 5MG
     Route: 048
  3. DIGOXIN [Suspect]
     Indication: CARDIAC FAILURE CONGESTIVE
     Dosage: 5MG
     Route: 048
  4. DIGOXIN [Suspect]
     Indication: INTENTIONAL OVERDOSE
     Dosage: 5MG
     Route: 048
  5. DIGOXIN [Suspect]
     Dosage: 0.125MG/DAY
     Route: 065
  6. DIGOXIN [Suspect]
     Dosage: 0.125MG/DAY
     Route: 065

REACTIONS (7)
  - NAUSEA [None]
  - SUICIDE ATTEMPT [None]
  - TOXICITY TO VARIOUS AGENTS [None]
  - INTENTIONAL OVERDOSE [None]
  - DIZZINESS [None]
  - ATRIAL FIBRILLATION [None]
  - VOMITING [None]
